FAERS Safety Report 8859118 (Version 1)
Quarter: 2012Q4

REPORT INFORMATION
  Report Type: Spontaneous
  Country: US (occurrence: None)
  Receive Date: 20121024
  Receipt Date: 20121024
  Transmission Date: 20130627
  Serious: Yes (Other)
  Sender: FDA-Public Use
  Company Number: None

PATIENT
  Age: 61 Year
  Sex: Female
  Weight: 113.4 kg

DRUGS (2)
  1. CALCIUM (+) VITAMIN D [Suspect]
     Indication: OSTEOPOROSIS
     Dosage: 1  daily  po
     Route: 048
     Dates: start: 20100101, end: 20121004
  2. VITAMIN D3 [Suspect]
     Indication: IMMUNE SYSTEM DISORDER
     Dosage: 1 daily po
     Route: 048
     Dates: start: 20120101, end: 20121004

REACTIONS (7)
  - Chest pain [None]
  - Pruritus [None]
  - Depressed mood [None]
  - Nausea [None]
  - Gastrointestinal disorder [None]
  - Muscle spasms [None]
  - Respiratory disorder [None]
